FAERS Safety Report 17771049 (Version 4)
Quarter: 2020Q2

REPORT INFORMATION
  Report Type: Spontaneous
  Country: US (occurrence: US)
  Receive Date: 20200512
  Receipt Date: 20200609
  Transmission Date: 20200714
  Serious: No
  Sender: FDA-Public Use
  Company Number: US-TEVA-2020-US-1234624

PATIENT
  Sex: Female

DRUGS (1)
  1. SYNRIBO [Suspect]
     Active Substance: OMACETAXINE MEPESUCCINATE
     Indication: CHRONIC MYELOID LEUKAEMIA
     Dosage: SYNRIBO 2.25MG/0.64ML, BID 14 DAYS OF 28 DAYS CYCLE
     Route: 065
     Dates: start: 20200428

REACTIONS (12)
  - Headache [Unknown]
  - Peripheral swelling [Not Recovered/Not Resolved]
  - Pruritus [Not Recovered/Not Resolved]
  - Injection site erythema [Unknown]
  - Asthenia [Unknown]
  - Nausea [Unknown]
  - Injection site irritation [Unknown]
  - Insomnia [Unknown]
  - Injection site urticaria [Unknown]
  - Pain [Unknown]
  - Leukonychia [Unknown]
  - Injection site swelling [Unknown]
